FAERS Safety Report 16149864 (Version 1)
Quarter: 2019Q2

REPORT INFORMATION
  Report Type: Spontaneous
  Country: US (occurrence: US)
  Receive Date: 20190228
  Receipt Date: 20190228
  Transmission Date: 20190711
  Serious: Yes (Hospitalization)
  Sender: FDA-Public Use
  Company Number: None

PATIENT
  Age: 74 Year
  Weight: 68.1 kg

DRUGS (1)
  1. TRAMADOL. [Suspect]
     Active Substance: TRAMADOL
     Indication: PAIN
     Route: 048
     Dates: start: 20121107, end: 20121117

REACTIONS (10)
  - Vomiting [None]
  - Blood glucose increased [None]
  - Dizziness [None]
  - Confusional state [None]
  - Constipation [None]
  - Wound [None]
  - Dysuria [None]
  - Nausea [None]
  - Abdominal pain [None]
  - Renal impairment [None]

NARRATIVE: CASE EVENT DATE: 20121117
